FAERS Safety Report 12519146 (Version 1)
Quarter: 2016Q2

REPORT INFORMATION
  Report Type: Spontaneous
  Country: US (occurrence: US)
  Receive Date: 20160630
  Receipt Date: 20160630
  Transmission Date: 20160815
  Serious: No
  Sender: FDA-Public Use
  Company Number: US-TEVA-671992ACC

PATIENT
  Age: 35 Year
  Sex: Female
  Weight: 78.54 kg

DRUGS (3)
  1. PARAGARD T 380A [Suspect]
     Active Substance: COPPER
     Indication: CONTRACEPTION
     Dates: start: 20160328, end: 20160608
  2. IRON [Concomitant]
     Active Substance: IRON
     Indication: BREAST FEEDING
  3. MULTIVITAMINS [Concomitant]
     Active Substance: VITAMINS
     Indication: BREAST FEEDING

REACTIONS (3)
  - Pelvic pain [Unknown]
  - Menstruation delayed [Not Recovered/Not Resolved]
  - Exposure during breast feeding [Unknown]

NARRATIVE: CASE EVENT DATE: 201602
